FAERS Safety Report 4302840-6 (Version None)
Quarter: 2004Q1

REPORT INFORMATION
  Report Type: 
  Country: None (occurrence: None)
  Receive Date: 20040126
  Receipt Date: 20031023
  Transmission Date: 20041129
  Serious: No
  Sender: FDA-Public Use
  Company Number: USA031050060

PATIENT
  Age: 56 Year
  Sex: Female

DRUGS (7)
  1. STRATTERA [Suspect]
     Indication: ANTIDEPRESSANT THERAPY
     Dosage: 40 MG/IN THE EVENING
     Dates: start: 20030901
  2. STRATTERA [Suspect]
     Indication: ATTENTION DEFICIT/HYPERACTIVITY DISORDER
     Dosage: 40 MG/IN THE EVENING
     Dates: start: 20030901
  3. NORTRIPTYLINE HCL [Concomitant]
  4. LITHIUM [Concomitant]
  5. HORMONE REPLACEMENT THERAPY [Concomitant]
  6. THYROID TAB [Concomitant]
  7. BUSPAR [Concomitant]

REACTIONS (9)
  - DRUG INEFFECTIVE [None]
  - FATIGUE [None]
  - FEELING ABNORMAL [None]
  - INFLUENZA [None]
  - MEMORY IMPAIRMENT [None]
  - NAUSEA [None]
  - PYREXIA [None]
  - SOMNOLENCE [None]
  - WEIGHT DECREASED [None]
